FAERS Safety Report 5326807-4 (Version None)
Quarter: 2007Q2

REPORT INFORMATION
  Report Type: 
  Country: None (occurrence: None)
  Receive Date: 20070516
  Receipt Date: 20070514
  Transmission Date: 20071010
  Serious: Yes (Death, Life-Threatening)
  Sender: FDA-Public Use
  Company Number: JP-BRISTOL-MYERS SQUIBB COMPANY-13778428

PATIENT
  Age: 29 Year
  Sex: Male

DRUGS (14)
  1. BLEOMYCIN [Suspect]
     Indication: MALIGNANT MEDIASTINAL NEOPLASM
     Route: 042
     Dates: start: 20060406, end: 20060413
  2. PARAPLATIN [Suspect]
     Indication: MALIGNANT MEDIASTINAL NEOPLASM
     Route: 042
     Dates: start: 20060509, end: 20060513
  3. VEPESID [Suspect]
     Indication: MALIGNANT MEDIASTINAL NEOPLASM
     Route: 042
     Dates: start: 20060509, end: 20060513
  4. RANDA [Concomitant]
     Indication: MALIGNANT MEDIASTINAL NEOPLASM
     Route: 042
     Dates: start: 20051117, end: 20060308
  5. KYTRIL [Concomitant]
     Route: 042
     Dates: start: 20060509, end: 20060513
  6. MEYLON [Concomitant]
     Route: 042
     Dates: start: 20060509, end: 20060513
  7. DIAMOX [Concomitant]
     Route: 042
     Dates: start: 20060509, end: 20060513
  8. GRAN [Concomitant]
     Route: 058
     Dates: start: 20060509, end: 20060513
  9. DIPRIVAN [Concomitant]
     Dates: start: 20060530, end: 20060601
  10. ELASPOL [Concomitant]
     Dates: start: 20060530, end: 20060601
  11. ZANTAC [Concomitant]
     Route: 042
     Dates: start: 20060530, end: 20060601
  12. MORPHINE [Concomitant]
     Dates: start: 20060530, end: 20060601
  13. LASIX [Concomitant]
     Route: 042
     Dates: start: 20060530, end: 20060601
  14. MUSCULAX [Concomitant]

REACTIONS (4)
  - DISSEMINATED INTRAVASCULAR COAGULATION [None]
  - INTERSTITIAL LUNG DISEASE [None]
  - MALIGNANT NEOPLASM PROGRESSION [None]
  - PULMONARY EMBOLISM [None]
